FAERS Safety Report 6518100-9 (Version None)
Quarter: 2009Q4

REPORT INFORMATION
  Report Type: 
  Country: None (occurrence: None)
  Receive Date: 20091224
  Receipt Date: 20091217
  Transmission Date: 20100525
  Serious: Yes (Hospitalization)
  Sender: FDA-Public Use
  Company Number: US-ELI_LILLY_AND_COMPANY-US200912004334

PATIENT
  Sex: Female

DRUGS (8)
  1. FORTEO [Suspect]
     Indication: OSTEOPOROSIS
     Dosage: 20 UG, DAILY (1/D)
     Dates: start: 20091015
  2. LISINOPRIL [Concomitant]
     Dosage: UNK, UNKNOWN
  3. SIMVASTATIN [Concomitant]
     Dosage: UNK, UNKNOWN
  4. PANTOPRAZOLE [Concomitant]
     Dosage: UNK, UNKNOWN
  5. VITAMIN D [Concomitant]
     Dosage: UNK, UNKNOWN
  6. ASCORBIC ACID [Concomitant]
     Dosage: UNK, UNKNOWN
  7. OSCAL [Concomitant]
     Dosage: UNK, DAILY (1/D)
  8. LOVAZA [Concomitant]
     Dosage: UNK, DAILY (1/D)

REACTIONS (2)
  - FALL [None]
  - WRIST FRACTURE [None]
